FAERS Safety Report 4868388-5 (Version None)
Quarter: 2005Q4

REPORT INFORMATION
  Report Type: 
  Country: None (occurrence: None)
  Receive Date: 20051229
  Receipt Date: 20051115
  Transmission Date: 20060501
  Serious: Yes (Disabling)
  Sender: FDA-Public Use
  Company Number: JP-JPN-A20052756

PATIENT
  Age: 53 Year
  Sex: Male

DRUGS (8)
  1. PAXIL [Suspect]
     Indication: DEPRESSION
     Route: 048
     Dates: end: 20051121
  2. ALPRAZOLAM [Concomitant]
     Route: 048
  3. MEILAX [Concomitant]
     Route: 048
  4. RIZE [Concomitant]
     Route: 048
  5. KERLONG [Concomitant]
     Route: 048
  6. ZYLORIC [Concomitant]
     Route: 048
  7. HERBESSER [Concomitant]
     Route: 065
  8. CARDENALIN [Concomitant]
     Route: 048

REACTIONS (3)
  - ARTHROPATHY [None]
  - ASTHENIA [None]
  - TREMOR [None]
